FAERS Safety Report 18105352 (Version 5)
Quarter: 2020Q3

REPORT INFORMATION
  Report Type: Report from Study
  Country: None (occurrence: CH)
  Receive Date: 20200803
  Receipt Date: 20200909
  Transmission Date: 20201103
  Serious: Yes (Hospitalization, Other)
  Sender: FDA-Public Use
  Company Number: CH-ABBVIE-20K-151-3506782-00

PATIENT
  Sex: Male

DRUGS (3)
  1. DUODOPA [Suspect]
     Active Substance: CARBIDOPA\LEVODOPA
     Indication: PARKINSON^S DISEASE
     Route: 050
     Dates: start: 20180823, end: 20180824
  2. DUODOPA [Suspect]
     Active Substance: CARBIDOPA\LEVODOPA
     Dosage: MD: 5.5 ML, CRD: 4.1 ML/H, CONTINUOUS RATE NIGHT: 0 ML/H, ED: 2 ML 16H THERAPY
     Route: 050
     Dates: start: 20180824, end: 20200615
  3. DUODOPA [Suspect]
     Active Substance: CARBIDOPA\LEVODOPA
     Dosage: MD: 5.5 ML, CRD: 3.3 ML/H, CONTINUOUS RATE NIGHT: 0 ML/H, ED: 2 ML 16H THERAPY
     Route: 050
     Dates: start: 20200615

REACTIONS (4)
  - General physical health deterioration [Recovered/Resolved]
  - Weight increased [Unknown]
  - Embedded device [Recovered/Resolved]
  - Haemoglobin decreased [Unknown]
